FAERS Safety Report 5979846-4 (Version None)
Quarter: 2008Q4

REPORT INFORMATION
  Report Type: 
  Country: None (occurrence: None)
  Receive Date: 20081126
  Receipt Date: 20081114
  Transmission Date: 20090506
  Serious: Yes (Hospitalization)
  Sender: FDA-Public Use
  Company Number: 000892

PATIENT
  Age: 11 Year
  Sex: Male

DRUGS (8)
  1. BUSULFEX [Suspect]
     Indication: STEM CELL TRANSPLANT
     Dosage: 5.2 ML, TID,  INTRAVENOUS;  5.2 ML, QID,  INTRAVENOUS;  5.2 ML, QD,  INTRAVENOUS
     Route: 042
     Dates: start: 20070925, end: 20070925
  2. BUSULFEX [Suspect]
     Indication: STEM CELL TRANSPLANT
     Dosage: 5.2 ML, TID,  INTRAVENOUS;  5.2 ML, QID,  INTRAVENOUS;  5.2 ML, QD,  INTRAVENOUS
     Route: 042
     Dates: start: 20070926, end: 20070928
  3. BUSULFEX [Suspect]
     Indication: STEM CELL TRANSPLANT
     Dosage: 5.2 ML, TID,  INTRAVENOUS;  5.2 ML, QID,  INTRAVENOUS;  5.2 ML, QD,  INTRAVENOUS
     Route: 042
     Dates: start: 20070929, end: 20070929
  4. DEPAKENE [Concomitant]
  5. MELPHALAN (MELPHALAN) [Concomitant]
  6. NEUTROGIN (LENOGRASTIM) [Concomitant]
  7. METHOTREXATE [Concomitant]
  8. TACROLIMUS [Concomitant]

REACTIONS (11)
  - ANOREXIA [None]
  - BONE MARROW TRANSPLANT REJECTION [None]
  - DIARRHOEA [None]
  - HYPOKALAEMIA [None]
  - NAUSEA [None]
  - POLYOMAVIRUS-ASSOCIATED NEPHROPATHY [None]
  - STOMATITIS [None]
  - THROMBOCYTOPENIA [None]
  - VENOOCCLUSIVE LIVER DISEASE [None]
  - VIRAL HAEMORRHAGIC CYSTITIS [None]
  - VOMITING [None]
